FAERS Safety Report 4893513-X (Version None)
Quarter: 2006Q1

REPORT INFORMATION
  Report Type: 
  Country: None (occurrence: None)
  Receive Date: 20060127
  Receipt Date: 20060116
  Transmission Date: 20060701
  Serious: Yes (Hospitalization)
  Sender: FDA-Public Use
  Company Number: FR-AVENTIS-200610188FR

PATIENT
  Age: 63 Year
  Sex: Female

DRUGS (6)
  1. FLAGYL [Suspect]
     Indication: ABDOMINAL ABSCESS
     Route: 048
     Dates: start: 20051221, end: 20051222
  2. LASILIX [Suspect]
     Route: 048
     Dates: start: 20051221, end: 20051222
  3. DROLEPTAN [Suspect]
     Route: 048
     Dates: start: 20051217, end: 20051221
  4. CIFLOX [Suspect]
     Indication: ABDOMINAL ABSCESS
     Route: 048
     Dates: start: 20051221, end: 20051222
  5. MOPRAL [Suspect]
     Route: 048
     Dates: start: 20051126, end: 20051222
  6. ZOPHREN [Suspect]
     Route: 048
     Dates: start: 20051214

REACTIONS (2)
  - DRUG TOXICITY [None]
  - PANCYTOPENIA [None]
